FAERS Safety Report 22524570 (Version 1)
Quarter: 2023Q2

REPORT INFORMATION
  Report Type: Spontaneous
  Country: KR (occurrence: KR)
  Receive Date: 20230606
  Receipt Date: 20230606
  Transmission Date: 20230722
  Serious: Yes (Hospitalization)
  Sender: FDA-Public Use
  Company Number: KR-ORGANON-O2305KOR003177

PATIENT
  Age: 79 Year
  Sex: Female
  Weight: 61 kg

DRUGS (6)
  1. COZAAR [Suspect]
     Active Substance: LOSARTAN POTASSIUM
     Dosage: UNK, 1 DAY
     Route: 048
     Dates: start: 20161228
  2. PRAVASTATIN SODIUM [Suspect]
     Active Substance: PRAVASTATIN SODIUM
     Dosage: 5 MILLIGRAM, 1 DAY
     Route: 048
     Dates: start: 20181031
  3. ASPIRIN [Concomitant]
     Active Substance: ASPIRIN
     Dosage: UNK, 1 DAY
     Route: 048
     Dates: start: 20100302
  4. NICORANDIL [Concomitant]
     Active Substance: NICORANDIL
     Dosage: UNK, 1 DAY
     Route: 048
     Dates: start: 20100302
  5. TRIMETAZIDINE DIHYDROCHLORIDE [Concomitant]
     Active Substance: TRIMETAZIDINE DIHYDROCHLORIDE
     Dosage: UNK UNK, BID (0.5 DAY)
     Route: 048
     Dates: start: 20130910
  6. RABEPRAZOLE SODIUM [Concomitant]
     Active Substance: RABEPRAZOLE SODIUM
     Dosage: UNK, 1 DAY
     Route: 048
     Dates: start: 20181031

REACTIONS (2)
  - Pulmonary embolism [Recovering/Resolving]
  - Arrhythmia [Recovering/Resolving]

NARRATIVE: CASE EVENT DATE: 20190101
